FAERS Safety Report 19103397 (Version 3)
Quarter: 2021Q2

REPORT INFORMATION
  Report Type: Spontaneous
  Country: CO (occurrence: CO)
  Receive Date: 20210407
  Receipt Date: 20210506
  Transmission Date: 20210717
  Serious: Yes (Other)
  Sender: FDA-Public Use
  Company Number: CO-PFIZER INC-2021328816

PATIENT
  Age: 65 Year
  Sex: Female

DRUGS (3)
  1. SUTENT [Suspect]
     Active Substance: SUNITINIB MALATE
     Dosage: 50 MG, CYCLIC (2 WEEKS AND REST 1 WEEK)
     Route: 048
     Dates: start: 20210323
  2. SUTENT [Suspect]
     Active Substance: SUNITINIB MALATE
     Dosage: 25 MG
     Route: 048
  3. SUTENT [Suspect]
     Active Substance: SUNITINIB MALATE
     Indication: RENAL CELL CARCINOMA
     Dosage: 50 MG, CYCLIC (2 WEEKS AND REST 1 WEEK)
     Route: 048
     Dates: start: 20210225, end: 20210314

REACTIONS (24)
  - Vulvovaginal pain [Unknown]
  - Swelling face [Unknown]
  - Lip dry [Unknown]
  - Dandruff [Unknown]
  - Skin burning sensation [Unknown]
  - Depression [Unknown]
  - Tongue discolouration [Unknown]
  - Discouragement [Not Recovered/Not Resolved]
  - Malaise [Not Recovered/Not Resolved]
  - Oropharyngeal plaque [Unknown]
  - Dysgeusia [Unknown]
  - Eating disorder [Unknown]
  - Influenza like illness [Not Recovered/Not Resolved]
  - Vulvovaginal discomfort [Unknown]
  - Eye discharge [Unknown]
  - Ocular hyperaemia [Unknown]
  - Dry eye [Unknown]
  - Vulvovaginal burning sensation [Unknown]
  - Fluid retention [Unknown]
  - Decreased appetite [Unknown]
  - Arthralgia [Not Recovered/Not Resolved]
  - Mucosal disorder [Unknown]
  - Eye irritation [Unknown]
  - Product prescribing issue [Unknown]
